FAERS Safety Report 10193075 (Version 2)
Quarter: 2014Q2

REPORT INFORMATION
  Report Type: Spontaneous
  Country: US (occurrence: US)
  Receive Date: 20140524
  Receipt Date: 20140612
  Transmission Date: 20141212
  Serious: Yes (Hospitalization, Other)
  Sender: FDA-Public Use
  Company Number: US-AMGEN-USASP2014036752

PATIENT
  Age: 78 Year
  Sex: Female
  Weight: 89.34 kg

DRUGS (9)
  1. PROLIA [Suspect]
     Indication: OSTEOPOROSIS POSTMENOPAUSAL
     Dosage: 60 MG, Q6MO
     Route: 030
     Dates: start: 201203, end: 201306
  2. ACIPHEX [Concomitant]
  3. SYNTHROID [Concomitant]
  4. MULTIVITAMINS [Concomitant]
  5. CELEBREX [Concomitant]
  6. CALCIUM +VIT D [Concomitant]
  7. CYMBALTA [Concomitant]
  8. ACTONEL [Concomitant]
  9. RECLAST [Concomitant]

REACTIONS (1)
  - Femur fracture [Unknown]
